FAERS Safety Report 9996511 (Version 2)
Quarter: 2014Q1

REPORT INFORMATION
  Report Type: Spontaneous
  Country: US (occurrence: US)
  Receive Date: 20140311
  Receipt Date: 20140311
  Transmission Date: 20141002
  Serious: Yes (Hospitalization, Other)
  Sender: FDA-Public Use
  Company Number: US-GILEAD-2013-0072361

PATIENT
  Age: 59 Year
  Sex: Male
  Weight: 69.5 kg

DRUGS (42)
  1. VISTIDE [Suspect]
     Indication: BK VIRUS INFECTION
     Dosage: 36 MG, ONCE
     Route: 042
     Dates: start: 20130214, end: 20130214
  2. VISTIDE [Suspect]
     Dosage: 36 MG, ONCE
     Route: 042
     Dates: start: 20130205, end: 20130205
  3. VISTIDE [Suspect]
     Dosage: 350 MG, Q1WK
     Route: 043
     Dates: start: 20130227
  4. URSO                               /00465701/ [Concomitant]
     Indication: PROPHYLAXIS
     Dosage: 500 MG, BID
     Route: 048
     Dates: start: 20121206
  5. ANUSOL                             /00156502/ [Concomitant]
     Indication: PROCTALGIA
     Dosage: 1 DF, PRN
     Route: 061
     Dates: start: 20121216
  6. ANUSOL                             /00156502/ [Concomitant]
     Indication: ANORECTAL DISCOMFORT
  7. ANUSOL                             /00156502/ [Concomitant]
     Indication: ANAL PRURITUS
  8. BUDESONIDE [Concomitant]
     Indication: GRAFT VERSUS HOST DISEASE
     Dosage: 3 MG, BID
     Route: 048
     Dates: start: 20130111
  9. PROGRAF [Concomitant]
     Indication: PROPHYLAXIS AGAINST GRAFT VERSUS HOST DISEASE
     Dosage: 1.5 MG, BID
     Route: 048
     Dates: start: 20130111
  10. LANTUS [Concomitant]
     Indication: DIABETES MELLITUS
     Dosage: UNK, QHS
     Route: 058
     Dates: start: 20130115
  11. MAGNESIUM SULFATE [Concomitant]
     Indication: HYPOMAGNESAEMIA
     Dosage: 4 G, ONCE
     Route: 042
     Dates: start: 20130115, end: 20130115
  12. MAGNESIUM SULFATE [Concomitant]
     Dosage: 4 G, ONCE
     Route: 042
     Dates: start: 20130117, end: 20130117
  13. MAGNESIUM SULFATE [Concomitant]
     Dosage: 4 G, ONCE
     Route: 042
     Dates: start: 20130118, end: 20130118
  14. MAGNESIUM SULFATE [Concomitant]
     Dosage: 1 G, PRN
     Route: 042
     Dates: start: 20130212, end: 20130215
  15. MAGNESIUM SULFATE [Concomitant]
     Dosage: 2 G, BID
     Route: 042
     Dates: start: 20130218, end: 20130223
  16. PREDNISONE [Concomitant]
     Indication: GRAFT VERSUS HOST DISEASE
     Dosage: 30 MG, BID
     Route: 048
     Dates: start: 20130118, end: 20130124
  17. PREDNISONE [Concomitant]
     Dosage: 30 MG, QD
     Route: 048
     Dates: start: 20130125, end: 20130131
  18. PREDNISONE [Concomitant]
     Dosage: 20 MG, QD
     Route: 048
     Dates: start: 20130125, end: 20130131
  19. PREDNISONE [Concomitant]
     Dosage: 20 MG, BID
     Route: 048
     Dates: start: 20130201, end: 20130207
  20. PREDNISONE [Concomitant]
     Dosage: 15 MG, BID
     Route: 048
     Dates: start: 20130208, end: 20130214
  21. PREDNISONE [Concomitant]
     Dosage: 15 MG, QD
     Route: 048
     Dates: start: 20130215, end: 20130215
  22. PREDNISONE [Concomitant]
     Dosage: 10 MG, QD
     Route: 048
     Dates: start: 20130215, end: 20130215
  23. PREDNISONE [Concomitant]
     Dosage: 10 MG, BID
     Route: 048
     Dates: start: 20130216, end: 20130220
  24. NOVOLOG [Concomitant]
     Indication: DIABETES MELLITUS
     Dosage: UNK
     Route: 058
     Dates: start: 20130115, end: 20130211
  25. NOVOLOG [Concomitant]
     Dosage: 5 IU, TID
     Route: 058
     Dates: start: 20130212
  26. VORICONAZOLE [Concomitant]
     Indication: PROPHYLAXIS
     Dosage: 200 MG, BID
     Route: 048
     Dates: start: 20130115, end: 20130212
  27. VORICONAZOLE [Concomitant]
     Dosage: 200 MG, BID
     Route: 048
     Dates: start: 20130214
  28. AMBIEN [Concomitant]
     Indication: INSOMNIA
     Dosage: UNK
     Dates: start: 20130122, end: 20130212
  29. AMBIEN [Concomitant]
     Dosage: 5 MG, PRN
     Route: 048
     Dates: start: 20130215
  30. VALCYTE [Concomitant]
     Indication: CYTOMEGALOVIRUS INFECTION
     Dosage: 450 MG, BID
     Route: 048
     Dates: start: 20130125, end: 20130218
  31. CIPRO                              /00697201/ [Concomitant]
     Indication: BK VIRUS INFECTION
     Dosage: 500 MG, BID
     Route: 048
     Dates: start: 20130129
  32. NORVASC [Concomitant]
     Indication: HYPERTENSION
     Dosage: 5 MG, QD
     Route: 048
     Dates: start: 20130205
  33. BECLOMETHASONE IN CORN OIL [Concomitant]
     Indication: GRAFT VERSUS HOST DISEASE
     Dosage: 2 MG, BID
     Route: 048
     Dates: start: 20130206
  34. XANAX [Concomitant]
     Indication: ANXIETY
     Dosage: 0.5 MG, QD
     Route: 048
     Dates: start: 20130206, end: 20130212
  35. XANAX [Concomitant]
     Dosage: 0.5 MG, QD
     Route: 048
     Dates: start: 20130213
  36. PROTONIX [Concomitant]
     Indication: DYSPEPSIA
     Dosage: 40 MG, QD
     Route: 048
     Dates: start: 20130212, end: 20130214
  37. MAALOX PLUS                        /00018101/ [Concomitant]
     Indication: DYSPEPSIA
     Dosage: 30 ML, PRN
     Route: 048
     Dates: start: 20130213, end: 20130214
  38. COLACE [Concomitant]
     Indication: CONSTIPATION
     Dosage: 100 MG, ONCE
     Route: 048
     Dates: start: 20130214, end: 20130214
  39. POTASSIUM CHLORIDE [Concomitant]
     Indication: HYPOKALAEMIA
     Dosage: 10 MEQ, PRN
     Route: 042
     Dates: start: 20130214, end: 20130215
  40. POTASSIUM CHLORIDE [Concomitant]
     Dosage: 20 MEQ, BID
     Route: 042
     Dates: start: 20130218, end: 20130223
  41. PREVACID [Concomitant]
     Indication: DYSPEPSIA
     Dosage: 30 MG, QD
     Route: 048
     Dates: start: 20130215, end: 20130218
  42. ZOFRAN                             /00955301/ [Concomitant]
     Indication: NAUSEA
     Dosage: 8 MG, PRN
     Route: 048
     Dates: start: 20130215

REACTIONS (1)
  - Pancytopenia [Recovering/Resolving]
